FAERS Safety Report 10018231 (Version 1)
Quarter: 2014Q1

REPORT INFORMATION
  Report Type: Spontaneous
  Country: US (occurrence: US)
  Receive Date: 20140318
  Receipt Date: 20140318
  Transmission Date: 20141002
  Serious: Yes (Hospitalization)
  Sender: FDA-Public Use
  Company Number: US-PFIZER INC-2014074912

PATIENT
  Age: 27 Year
  Sex: Female

DRUGS (1)
  1. METRONIDAZOLE [Suspect]
     Indication: BACTERIAL VAGINOSIS
     Dosage: 500 MG, 2X/DAY

REACTIONS (1)
  - Substance-induced psychotic disorder [Recovered/Resolved]
